FAERS Safety Report 13051300 (Version 1)
Quarter: 2016Q4

REPORT INFORMATION
  Report Type: Spontaneous
  Country: US (occurrence: US)
  Receive Date: 20161221
  Receipt Date: 20161221
  Transmission Date: 20170207
  Serious: No
  Sender: FDA-Public Use
  Company Number: None

PATIENT
  Age: 33 Year
  Sex: Female
  Weight: 103.5 kg

DRUGS (5)
  1. BIOTIN [Concomitant]
     Active Substance: BIOTIN
  2. DUREZOL [Suspect]
     Active Substance: DIFLUPREDNATE
     Indication: POSTOPERATIVE CARE
     Dosage: ?          QUANTITY:1 DROP(S);?
     Route: 047
     Dates: start: 20161216, end: 20161221
  3. DUREZOL [Suspect]
     Active Substance: DIFLUPREDNATE
     Indication: EYE LASER SURGERY
     Dosage: ?          QUANTITY:1 DROP(S);?
     Route: 047
     Dates: start: 20161216, end: 20161221
  4. TOBRAMYCIN. [Concomitant]
     Active Substance: TOBRAMYCIN
  5. POLYMYXIN [Concomitant]
     Active Substance: POLYMYXIN

REACTIONS (3)
  - Administration site reaction [None]
  - Eye irritation [None]
  - Eye pain [None]

NARRATIVE: CASE EVENT DATE: 20161220
